FAERS Safety Report 5558660-8 (Version None)
Quarter: 2007Q4

REPORT INFORMATION
  Report Type: 
  Country: None (occurrence: None)
  Receive Date: 20071214
  Receipt Date: 20071212
  Transmission Date: 20080405
  Serious: Yes (Other)
  Sender: FDA-Public Use
  Company Number: GB-BOEHRINGER INGELHEIM PHARMACEUTICALS, INC.-2007-UK-04037UK

PATIENT
  Age: 9 Year
  Sex: Male
  Weight: 26 kg

DRUGS (7)
  1. CATAPRES [Suspect]
     Indication: TOURETTE'S DISORDER
     Dosage: 2/1/ DAYS
     Route: 048
     Dates: start: 20050123
  2. CATAPRES [Suspect]
     Dosage: 2/1 DAYS
     Route: 048
     Dates: start: 20050331, end: 20050404
  3. CATAPRES [Suspect]
     Dosage: 2/1 DAYS
     Route: 048
     Dates: end: 20050331
  4. CHLORPHENIRAMINE MALEATE [Concomitant]
     Indication: HYPERSENSITIVITY
     Dosage: AS NECESSARY
     Route: 048
  5. FLUTICASONE PROPIONATE [Concomitant]
     Indication: ASTHMA
     Dosage: AS NECESSARY
     Route: 055
  6. MELPHALAN [Concomitant]
     Indication: ASTHMA
     Dosage: AS NECESSARY
     Route: 055
  7. ALBUTEROL [Concomitant]
     Indication: ASTHMA
     Dosage: AS NECESSARY
     Route: 055

REACTIONS (3)
  - ASTHMA [None]
  - HYPERSENSITIVITY [None]
  - RASH GENERALISED [None]
